FAERS Safety Report 9204951 (Version 1)
Quarter: 2013Q1

REPORT INFORMATION
  Report Type: Spontaneous
  Country: US (occurrence: None)
  Receive Date: 20120709
  Receipt Date: 20120709
  Transmission Date: 20140127
  Serious: Yes (Other)
  Sender: FDA-Public Use
  Company Number: PHEH2012US000668

PATIENT
  Age: 79 Year
  Sex: Male
  Weight: 164 kg

DRUGS (2)
  1. GLEEVEC (IMATINIB) [Suspect]
     Indication: CHRONIC MYELOID LEUKAEMIA
     Route: 048
     Dates: start: 20090226
  2. GLEEVEC REGIMEN [Suspect]

REACTIONS (5)
  - Chronic myeloid leukaemia transformation [None]
  - Abdominal pain [None]
  - Blood count abnormal [None]
  - Platelet count increased [None]
  - White blood cell count decreased [None]
